FAERS Safety Report 8850561 (Version 2)
Quarter: 2012Q4

REPORT INFORMATION
  Report Type: 
  Country: US (occurrence: US)
  Receive Date: 20121019
  Receipt Date: 20121213
  Transmission Date: 20130627
  Serious: Yes (Other)
  Sender: FDA-Public Use
  Company Number: CHPA2012US021806

PATIENT
  Age: 77 Year
  Sex: Male

DRUGS (2)
  1. LAMISIL AT CONTINUOUS SPRAY [Suspect]
     Indication: PROPHYLAXIS
     Dosage: Once per week
     Route: 061
  2. LAMISIL [Suspect]
     Indication: PROPHYLAXIS
     Dosage: Unk, Unk
     Route: 048

REACTIONS (5)
  - Rotator cuff syndrome [Recovered/Resolved]
  - Tendon injury [Recovered/Resolved]
  - Off label use [Unknown]
  - Wrong technique in drug usage process [Unknown]
  - Inappropriate schedule of drug administration [Unknown]
